FAERS Safety Report 5139748-2 (Version None)
Quarter: 2006Q4

REPORT INFORMATION
  Report Type: 
  Country: None (occurrence: None)
  Receive Date: 20061024
  Receipt Date: 20061009
  Transmission Date: 20070319
  Serious: Yes (Hospitalization)
  Sender: FDA-Public Use
  Company Number: AND_0454_2006

PATIENT
  Age: 35 Year
  Sex: Male

DRUGS (10)
  1. METFORMIN HYDROCHLORIDE [Suspect]
     Indication: DIABETES MELLITUS
     Dosage: 500 MG BID PO
     Route: 048
  2. CALCIUM [Concomitant]
  3. CIMETIDINE [Concomitant]
  4. FERROUS SULFATE TAB [Concomitant]
  5. GLYBURIDE [Concomitant]
  6. ISONIAZID [Concomitant]
  7. MAGNESIUM TRISILICATE MIXTURE [Concomitant]
  8. NUTRIZYM [Concomitant]
  9. RIFAMPICIN [Concomitant]
  10. VITAMIN D [Concomitant]

REACTIONS (3)
  - COMA [None]
  - HYPOGLYCAEMIA [None]
  - LACTIC ACIDOSIS [None]
